FAERS Safety Report 25859573 (Version 2)
Quarter: 2025Q4

REPORT INFORMATION
  Report Type: Spontaneous
  Country: RS (occurrence: RS)
  Receive Date: 20250929
  Receipt Date: 20251024
  Transmission Date: 20260117
  Serious: Yes (Other)
  Sender: BAYER HEALTHCARE PHARMACEUTICALS INC.
  Company Number: RS-BAYER-2025A127879

PATIENT
  Age: 52 Year
  Sex: Female

DRUGS (12)
  1. ADEMPAS [Suspect]
     Active Substance: RIOCIGUAT
     Indication: Pulmonary arterial hypertension
     Dosage: 0.5 MG
  2. TRIMETAZIDINE [Concomitant]
     Active Substance: TRIMETAZIDINE
  3. FUROSEMIDE [Concomitant]
     Active Substance: FUROSEMIDE
  4. EPLERENONE [Concomitant]
     Active Substance: EPLERENONE
  5. DAPAGLIFLOZIN [Concomitant]
     Active Substance: DAPAGLIFLOZIN
  6. OXYGEN [Concomitant]
     Active Substance: OXYGEN
  7. SILDENAFIL [Concomitant]
     Active Substance: SILDENAFIL
  8. MACITENTAN [Concomitant]
     Active Substance: MACITENTAN
  9. VERAPAMIL [Concomitant]
     Active Substance: VERAPAMIL HYDROCHLORIDE
  10. TORSEMIDE [Concomitant]
     Active Substance: TORSEMIDE
  11. VITAMIN K [Concomitant]
     Active Substance: PHYTONADIONE
  12. SOTATERCEPT [Concomitant]
     Active Substance: SOTATERCEPT

REACTIONS (5)
  - Hepatic cirrhosis [Recovered/Resolved]
  - Skin ulcer [Recovered/Resolved]
  - Systemic scleroderma [None]
  - Dyspnoea [None]
  - Fatigue [None]
